FAERS Safety Report 23663163 (Version 1)
Quarter: 2024Q1

REPORT INFORMATION
  Report Type: Spontaneous
  Country: US (occurrence: US)
  Receive Date: 20240322
  Receipt Date: 20240322
  Transmission Date: 20240410
  Serious: No
  Sender: FDA-Public Use
  Company Number: US-HALEON-USCH2024015236

PATIENT
  Age: 27 Year

DRUGS (1)
  1. ABREVA [Suspect]
     Active Substance: DOCOSANOL
     Indication: Oral herpes
     Dosage: UNK

REACTIONS (6)
  - Hypersensitivity [Unknown]
  - Lip swelling [Unknown]
  - Swelling face [Unknown]
  - Swelling [Unknown]
  - Pharyngeal swelling [Unknown]
  - Lymphadenopathy [Unknown]
